FAERS Safety Report 4751709-1 (Version None)
Quarter: 2005Q3

REPORT INFORMATION
  Report Type: 
  Country: None (occurrence: None)
  Receive Date: 20050822
  Receipt Date: 20050822
  Transmission Date: 20060218
  Serious: Yes (Hospitalization, Other)
  Sender: FDA-Public Use
  Company Number: None

PATIENT
  Age: 7 Year
  Sex: Male
  Weight: 31.7518 kg

DRUGS (2)
  1. PAXIL [Suspect]
     Indication: AGGRESSION
     Dates: start: 19980901, end: 19981001
  2. PAXIL [Suspect]
     Indication: DEPRESSION
     Dates: start: 19980901, end: 19981001

REACTIONS (6)
  - ABNORMAL BEHAVIOUR [None]
  - AGGRESSION [None]
  - AMNESIA [None]
  - DRUG INEFFECTIVE [None]
  - HOMICIDAL IDEATION [None]
  - OVERDOSE [None]
